FAERS Safety Report 18210263 (Version 1)
Quarter: 2020Q3

REPORT INFORMATION
  Report Type: Spontaneous
  Country: US (occurrence: US)
  Receive Date: 20200829
  Receipt Date: 20200829
  Transmission Date: 20201103
  Serious: No
  Sender: FDA-Public Use
  Company Number: US-DRREDDYS-USA/USA/20/0126127

PATIENT
  Age: 72 Year
  Sex: Female

DRUGS (1)
  1. FONDAPARINUX SODIUM. [Suspect]
     Active Substance: FONDAPARINUX SODIUM
     Indication: EMBOLISM
     Dosage: FONDAPARINUX SODIUM SOLUTION 7.5 MG/0.6 ML
     Route: 058
     Dates: start: 202007

REACTIONS (2)
  - Injection site pain [Unknown]
  - Product quality issue [Unknown]
